FAERS Safety Report 5087293-5 (Version None)
Quarter: 2006Q3

REPORT INFORMATION
  Report Type: 
  Country: None (occurrence: None)
  Receive Date: 20060801
  Receipt Date: 20050804
  Transmission Date: 20061208
  Serious: Yes (Other)
  Sender: FDA-Public Use
  Company Number: OMPQ-PR-0508S-1130

PATIENT
  Age: 76 Year
  Sex: Male
  Weight: 90.7194 kg

DRUGS (1)
  1. OMNIPAQUE 140 [Suspect]
     Indication: AORTIC ANEURYSM
     Dosage: 150 ML, SINGLE DOSE, I.V.
     Route: 042
     Dates: start: 20050804, end: 20050804

REACTIONS (1)
  - ANAPHYLACTOID REACTION [None]
